FAERS Safety Report 8311171 (Version 8)
Quarter: 2013Q2

REPORT INFORMATION
  Report Type: Report from Study
  Country: DE (occurrence: DE)
  Receive Date: 20111227
  Receipt Date: 20130628
  Transmission Date: 20140414
  Serious: Yes (Hospitalization, Disabling, Other)
  Sender: FDA-Public Use
  Company Number: PHHY2011DE92230

PATIENT
  Age: 74 Year
  Sex: Female

DRUGS (13)
  1. AMN107 [Suspect]
     Indication: CHRONIC MYELOID LEUKAEMIA
     Dosage: 400 MG, DAILY
     Route: 048
     Dates: start: 20101213, end: 20101216
  2. AMN107 [Suspect]
     Dosage: 800 MG, DAILY
     Route: 048
     Dates: start: 20101217, end: 20101222
  3. AMN107 [Suspect]
     Dosage: 400 MG, DAILY
     Route: 048
     Dates: start: 20101223
  4. AMN107 [Suspect]
     Dosage: 400 MG, DAILY
     Route: 048
     Dates: start: 20110505, end: 20120124
  5. PANTOPRAZOLE [Concomitant]
     Indication: PROPHYLAXIS
     Dosage: 40 MG
     Route: 048
  6. TORASEMIDE [Concomitant]
     Indication: OEDEMA
     Dosage: 10 MG
     Route: 048
  7. TORASEMIDE [Concomitant]
     Indication: HYPERTENSION
  8. L-THYROXINE [Concomitant]
     Indication: HYPOTHYROIDISM
     Dosage: 25 UG
     Route: 048
  9. ACTRAPHANE HM [Concomitant]
     Indication: DIABETES MELLITUS
     Dosage: UNK UKN, UNK
     Route: 058
  10. VERGENTAN [Concomitant]
     Dates: start: 20101220
  11. ONDANSETRON [Concomitant]
     Dates: start: 20110223
  12. MCP ^ALIUD PHARMA^ [Concomitant]
     Dates: start: 20110505
  13. DELIX [Concomitant]
     Indication: HYPERTENSION
     Dosage: 2.5 MG, QD

REACTIONS (15)
  - Gastrointestinal haemorrhage [Recovered/Resolved]
  - Jaundice [Recovering/Resolving]
  - Hepatic enzyme increased [Unknown]
  - Abdominal pain [Unknown]
  - Hepatomegaly [Unknown]
  - Hepatic steatosis [Unknown]
  - Anaemia [Unknown]
  - Hepatocellular injury [Not Recovered/Not Resolved]
  - Nausea [Unknown]
  - Dizziness [Not Recovered/Not Resolved]
  - Gastric disorder [Recovered/Resolved]
  - Abdominal discomfort [Recovered/Resolved]
  - Oedema peripheral [Recovered/Resolved]
  - Dermatitis [Recovered/Resolved]
  - Pyrexia [Recovered/Resolved]
